FAERS Safety Report 17446449 (Version 1)
Quarter: 2020Q1

REPORT INFORMATION
  Report Type: Spontaneous
  Country: US (occurrence: US)
  Receive Date: 20200221
  Receipt Date: 20200221
  Transmission Date: 20200409
  Serious: No
  Sender: FDA-Public Use
  Company Number: US-BRACCO-2019US03631

PATIENT
  Age: 72 Year
  Sex: Female

DRUGS (1)
  1. ISOVUE 370 [Suspect]
     Active Substance: IOPAMIDOL
     Indication: ARTERIOGRAM CAROTID
     Dosage: 100 ML AT A RATE OF 5 ML/SEC, SINGLE
     Route: 042
     Dates: start: 20190529, end: 20190529

REACTIONS (2)
  - Pain [Unknown]
  - Extravasation [Unknown]

NARRATIVE: CASE EVENT DATE: 20190529
